FAERS Safety Report 5681119-4 (Version None)
Quarter: 2008Q1

REPORT INFORMATION
  Report Type: 
  Country: None (occurrence: None)
  Receive Date: 20080325
  Receipt Date: 20080312
  Transmission Date: 20080703
  Serious: Yes (Death, Other)
  Sender: FDA-Public Use
  Company Number: 08H-062-0314003-00

PATIENT
  Age: 78 Year

DRUGS (3)
  1. PROPOFOL [Suspect]
     Indication: SEDATIVE THERAPY
     Dosage: 40-60 MG, INTRAVENOUS
     Route: 042
  2. OXYGEN (OXYGEN) [Concomitant]
  3. MIDAZOLAM HCL [Suspect]
     Indication: SEDATIVE THERAPY
     Dosage: 2 MG

REACTIONS (4)
  - BLOOD PRESSURE DECREASED [None]
  - CARDIAC FAILURE ACUTE [None]
  - GENERAL PHYSICAL HEALTH DETERIORATION [None]
  - RESUSCITATION [None]
